FAERS Safety Report 4893429-9 (Version None)
Quarter: 2006Q1

REPORT INFORMATION
  Report Type: 
  Country: None (occurrence: None)
  Receive Date: 20060124
  Receipt Date: 20060111
  Transmission Date: 20060701
  Serious: Yes (Life-Threatening, Other)
  Sender: FDA-Public Use
  Company Number: 2006006745

PATIENT
  Sex: Female
  Weight: 104.3273 kg

DRUGS (12)
  1. LIPITOR [Suspect]
     Indication: BLOOD CHOLESTEROL INCREASED
     Dosage: 20 MG (20 MG, 1 IN 1 D), ORAL
     Route: 048
  2. CELEBREX [Suspect]
     Indication: ARTHRALGIA
     Dosage: 400 MG (200 MG, 2 IN 1 D), ORAL
     Route: 048
  3. NEURONTIN [Suspect]
     Indication: MUSCLE SPASMS
     Dosage: 1800 MG (600 MG, 3 IN 1 D), ORAL
     Route: 048
  4. PAXIL [Concomitant]
  5. COREG [Concomitant]
  6. DIOVAN [Concomitant]
  7. LEVOXYL [Concomitant]
  8. MULTIVITAMIN [Concomitant]
  9. VITAMINS (VITAMINS) [Concomitant]
  10. FISH OIL (FISH OIL ) [Concomitant]
  11. AMBIEN [Concomitant]
  12. LECITHIN (LECITHIN) [Concomitant]

REACTIONS (10)
  - BODY HEIGHT DECREASED [None]
  - ECONOMIC PROBLEM [None]
  - INTERVERTEBRAL DISC PROTRUSION [None]
  - LUNG NEOPLASM MALIGNANT [None]
  - MUSCLE SPASMS [None]
  - PNEUMONIA [None]
  - POLYARTHRITIS [None]
  - SCOLIOSIS [None]
  - SPINAL COMPRESSION FRACTURE [None]
  - SPINAL OSTEOARTHRITIS [None]
